FAERS Safety Report 8433874-8 (Version None)
Quarter: 2012Q2

REPORT INFORMATION
  Report Type: 
  Country: None (occurrence: None)
  Receive Date: 20120613
  Receipt Date: 20120607
  Transmission Date: 20120825
  Serious: Yes (Death)
  Sender: FDA-Public Use
  Company Number: JP-PFIZER INC-2012137724

PATIENT
  Age: 50 Year
  Sex: Male

DRUGS (3)
  1. OPALMON [Concomitant]
     Dosage: UNK
  2. LYRICA [Suspect]
     Indication: SPINAL OSTEOARTHRITIS
     Dosage: 75 MG, 1X/DAY
     Route: 048
     Dates: start: 20120309
  3. ACETAMINOPHEN [Concomitant]
     Dosage: UNK

REACTIONS (1)
  - DEATH [None]
